FAERS Safety Report 12878471 (Version 2)
Quarter: 2016Q4

REPORT INFORMATION
  Report Type: Spontaneous
  Country: JP (occurrence: JP)
  Receive Date: 20161024
  Receipt Date: 20161202
  Transmission Date: 20170207
  Serious: Yes (Hospitalization, Other)
  Sender: FDA-Public Use
  Company Number: JP-B.I. PHARMACEUTICALS,INC./RIDGEFIELD-2016-NB-000234

PATIENT
  Age: 63 Year
  Sex: Male

DRUGS (1)
  1. OFEV [Suspect]
     Active Substance: NINTEDANIB
     Indication: IDIOPATHIC PULMONARY FIBROSIS
     Route: 065

REACTIONS (6)
  - Gastric cancer [Unknown]
  - Intestinal obstruction [Unknown]
  - Impaired healing [Unknown]
  - Wound dehiscence [Not Recovered/Not Resolved]
  - Pneumothorax [Unknown]
  - Faeces discoloured [Unknown]
